FAERS Safety Report 15556369 (Version 1)
Quarter: 2018Q4

REPORT INFORMATION
  Report Type: Spontaneous
  Country: US (occurrence: US)
  Receive Date: 20181026
  Receipt Date: 20181026
  Transmission Date: 20190205
  Serious: Yes (Other)
  Sender: FDA-Public Use
  Company Number: US-SA-2018SA293602

PATIENT

DRUGS (1)
  1. MOZOBIL [Suspect]
     Active Substance: PLERIXAFOR
     Route: 065

REACTIONS (2)
  - Swollen tongue [Unknown]
  - Seizure [Unknown]
